FAERS Safety Report 9748732 (Version 1)
Quarter: 2013Q4

REPORT INFORMATION
  Report Type: Spontaneous
  Country: US (occurrence: None)
  Receive Date: 20131209
  Receipt Date: 20131209
  Transmission Date: 20140711
  Serious: Yes (Life-Threatening, Hospitalization)
  Sender: FDA-Public Use
  Company Number: BD-2013-0031

PATIENT
  Age: 30 Year
  Sex: Female

DRUGS (1)
  1. DIPHENHYDRAMINE [Suspect]
     Indication: PRODUCT USED FOR UNKNOWN INDICATION

REACTIONS (9)
  - Pulseless electrical activity [None]
  - Ventricular tachycardia [None]
  - Unresponsive to stimuli [None]
  - Status epilepticus [None]
  - Intentional overdose [None]
  - Mental status changes [None]
  - Aggression [None]
  - Anticholinergic syndrome [None]
  - Hypotension [None]
